FAERS Safety Report 20662933 (Version 1)
Quarter: 2022Q1

REPORT INFORMATION
  Report Type: Spontaneous
  Country: US (occurrence: None)
  Receive Date: 20220331
  Receipt Date: 20220331
  Transmission Date: 20220423
  Serious: Yes (Hospitalization)
  Sender: FDA-Public Use
  Company Number: None

PATIENT
  Age: 84 Year
  Sex: Female
  Weight: 45.36 kg

DRUGS (16)
  1. IBRANCE [Suspect]
     Active Substance: PALBOCICLIB
     Indication: Breast cancer female
     Dosage: FREQUENCY : 3 TIMES A WEEK;?
     Route: 048
     Dates: start: 202202
  2. ACYCLOVIR [Concomitant]
     Active Substance: ACYCLOVIR
  3. AMLODIPINE BESYLATE [Concomitant]
     Active Substance: AMLODIPINE BESYLATE
  4. DULCOLAX STOOL SOFTENER [Concomitant]
     Active Substance: DOCUSATE SODIUM
  5. Fulvestrant Intramuscular Solution [Concomitant]
  6. LETROZOLE [Concomitant]
     Active Substance: LETROZOLE
  7. LEVOTHYROXINE SODIUM [Concomitant]
     Active Substance: LEVOTHYROXINE SODIUM
  8. LINZESS [Concomitant]
     Active Substance: LINACLOTIDE
  9. MARINOL [Concomitant]
     Active Substance: DRONABINOL
  10. MILK OF MAGNESIA [Concomitant]
     Active Substance: MAGNESIUM HYDROXIDE
  11. PEPCID [Concomitant]
     Active Substance: FAMOTIDINE
  12. STOOL SOFTENER (DOCUSATE) [Concomitant]
     Active Substance: DOCUSATE
  13. TRAMADOL HCL [Concomitant]
     Active Substance: TRAMADOL HYDROCHLORIDE
  14. TYLENOL [Concomitant]
     Active Substance: ACETAMINOPHEN
  15. VITAMIN B COMPLEX [Concomitant]
  16. VITAMIN D [Concomitant]
     Active Substance: VITAMIN D NOS

REACTIONS (1)
  - Pulmonary oedema [None]
